FAERS Safety Report 9983966 (Version 2)
Quarter: 2014Q1

REPORT INFORMATION
  Report Type: Report from Study
  Country: PR (occurrence: PR)
  Receive Date: 20140307
  Receipt Date: 20140307
  Transmission Date: 20141002
  Serious: Yes (Other)
  Sender: FDA-Public Use
  Company Number: PR-ABBVIE-13P-131-1172543-00

PATIENT
  Age: 27 Year
  Sex: Female
  Weight: 56.3 kg

DRUGS (1)
  1. HUMIRA [Suspect]
     Indication: CROHN^S DISEASE
     Route: 058
     Dates: start: 201111, end: 201306

REACTIONS (2)
  - Anal abscess [Recovered/Resolved]
  - Drug ineffective [Recovered/Resolved]
